FAERS Safety Report 11740064 (Version 1)
Quarter: 2015Q4

REPORT INFORMATION
  Report Type: Spontaneous
  Country: FR (occurrence: FR)
  Receive Date: 20151113
  Receipt Date: 20151113
  Transmission Date: 20160304
  Serious: Yes (Life-Threatening, Hospitalization, Congenital Anomaly, Other)
  Sender: FDA-Public Use
  Company Number: FR-ABBVIE-15P-056-1500241-00

PATIENT
  Age: 1 Day
  Sex: Female

DRUGS (2)
  1. DEPAKINE [Suspect]
     Active Substance: VALPROATE SODIUM
     Indication: MATERNAL EXPOSURE TIMING UNSPECIFIED
     Route: 064
  2. DEPAKINE [Suspect]
     Active Substance: VALPROATE SODIUM
     Route: 063

REACTIONS (7)
  - Ventricular septal defect [Recovered/Resolved with Sequelae]
  - Procedural complication [Unknown]
  - Foetal exposure during pregnancy [Unknown]
  - Coarctation of the aorta [Recovered/Resolved with Sequelae]
  - Hemiplegia [Unknown]
  - Ischaemic stroke [Unknown]
  - Exposure during breast feeding [Unknown]

NARRATIVE: CASE EVENT DATE: 201403
